FAERS Safety Report 11157367 (Version 2)
Quarter: 2015Q2

REPORT INFORMATION
  Report Type: Spontaneous
  Country: US (occurrence: US)
  Receive Date: 20150603
  Receipt Date: 20150629
  Transmission Date: 20150821
  Serious: No
  Sender: FDA-Public Use
  Company Number: US-AMGEN-USASP2015052101

PATIENT
  Sex: Female

DRUGS (1)
  1. ENBREL [Suspect]
     Active Substance: ETANERCEPT
     Indication: PRODUCT USED FOR UNKNOWN INDICATION
     Dosage: 50 MG, QWK
     Route: 065
     Dates: start: 20140702

REACTIONS (6)
  - Vomiting [Unknown]
  - Ageusia [Unknown]
  - Dizziness [Unknown]
  - Headache [Unknown]
  - Gait disturbance [Unknown]
  - Malaise [Unknown]
